FAERS Safety Report 10270967 (Version 2)
Quarter: 2014Q3

REPORT INFORMATION
  Report Type: Spontaneous
  Country: DE (occurrence: None)
  Receive Date: 20140626
  Receipt Date: 20140708
  Transmission Date: 20150326
  Serious: Yes (Death)
  Sender: FDA-Public Use
  Company Number: DEP_02160_2014

PATIENT
  Age: 69 Year
  Sex: Male

DRUGS (6)
  1. IBUPROFEN. [Concomitant]
     Active Substance: IBUPROFEN
  2. PECFENT [Suspect]
     Active Substance: FENTANYL CITRATE
     Indication: BREAKTHROUGH PAIN
     Dosage: 100 UG 1 BOTTLE, 200 UG/SPRAY UP TO 6X DAILY)
  3. NOVAMINSULFON [Concomitant]
     Active Substance: METAMIZOLE
  4. HYDROMORPHONE [Concomitant]
     Active Substance: HYDROMORPHONE
  5. AMITRIPTYLINE [Concomitant]
     Active Substance: AMITRIPTYLINE
  6. OXYGEN. [Concomitant]
     Active Substance: OXYGEN

REACTIONS (5)
  - Dyspnoea [None]
  - Coma [None]
  - Off label use [None]
  - Oxygen saturation decreased [None]
  - Respiratory failure [None]
